FAERS Safety Report 6447813-2 (Version None)
Quarter: 2009Q4

REPORT INFORMATION
  Report Type: 
  Country: None (occurrence: None)
  Receive Date: 20091120
  Receipt Date: 20090824
  Transmission Date: 20100525
  Serious: No
  Sender: FDA-Public Use
  Company Number: A0803773A

PATIENT
  Age: 73 Year
  Sex: Male

DRUGS (3)
  1. VERAMYST [Suspect]
     Dosage: 2SPR PER DAY
     Route: 045
     Dates: start: 20090822
  2. UNKNOWN MEDICATION [Concomitant]
     Indication: HYPERTENSION
  3. QVAR 40 [Concomitant]

REACTIONS (1)
  - SOMNOLENCE [None]
